APPROVED DRUG PRODUCT: NALOXONE HYDROCHLORIDE
Active Ingredient: NALOXONE HYDROCHLORIDE
Strength: 8MG/SPRAY
Dosage Form/Route: SPRAY;NASAL
Application: A216719 | Product #001
Applicant: PADAGIS ISRAEL PHARMACEUTICALS LTD
Approved: Apr 24, 2025 | RLD: No | RS: No | Type: DISCN